FAERS Safety Report 15289166 (Version 1)
Quarter: 2018Q3

REPORT INFORMATION
  Report Type: Spontaneous
  Country: MX (occurrence: MX)
  Receive Date: 20180817
  Receipt Date: 20180817
  Transmission Date: 20181010
  Serious: Yes (Other)
  Sender: FDA-Public Use
  Company Number: MX-SCIEGEN PHARMACEUTICALS INC-2018SCILIT00545

PATIENT
  Age: 69 Year
  Sex: Female

DRUGS (4)
  1. PRAMIPEXOLE DIHYDROCHLORIDE TABLETS [Suspect]
     Active Substance: PRAMIPEXOLE DIHYDROCHLORIDE
     Dosage: 0.5 MG, SIX TABLETS AT THE SAME TIME, DAILY
     Route: 065
  2. PRAMIPEXOLE DIHYDROCHLORIDE TABLETS [Suspect]
     Active Substance: PRAMIPEXOLE DIHYDROCHLORIDE
     Indication: PARKINSON^S DISEASE
     Dosage: 0.375 MG, QD
     Route: 065
  3. PRAMIPEXOLE DIHYDROCHLORIDE TABLETS [Suspect]
     Active Substance: PRAMIPEXOLE DIHYDROCHLORIDE
     Dosage: 3 MG, UNK
     Route: 065
  4. PRAMIPEXOLE DIHYDROCHLORIDE TABLETS [Suspect]
     Active Substance: PRAMIPEXOLE DIHYDROCHLORIDE
     Dosage: INCREASING DOSE EVERY MONTH UP TO 3 MG
     Route: 065

REACTIONS (2)
  - Wrong dosage form [Unknown]
  - Pituitary haemorrhage [Unknown]
